APPROVED DRUG PRODUCT: LEVETIRACETAM
Active Ingredient: LEVETIRACETAM
Strength: 1GM
Dosage Form/Route: TABLET, EXTENDED RELEASE;ORAL
Application: A202958 | Product #001
Applicant: APOTEX INC
Approved: Feb 25, 2015 | RLD: No | RS: No | Type: DISCN